FAERS Safety Report 7312877-0 (Version None)
Quarter: 2011Q1

REPORT INFORMATION
  Report Type: 
  Country: None (occurrence: None)
  Receive Date: 20110224
  Receipt Date: 20110125
  Transmission Date: 20110831
  Serious: Yes (Other)
  Sender: FDA-Public Use
  Company Number: PHFR2010GB06127

PATIENT
  Sex: Female

DRUGS (5)
  1. CLOZARIL [Suspect]
     Indication: SCHIZOPHRENIA
     Dosage: UNK
     Route: 048
     Dates: start: 20070101
  2. CITALOPRAM [Concomitant]
     Indication: OBSESSIVE-COMPULSIVE DISORDER
     Dosage: 40MG DAILY
     Route: 048
     Dates: start: 20060101
  3. CLOZARIL [Suspect]
     Dosage: 350G DAILY
     Route: 048
     Dates: end: 20101229
  4. TOPIRAMATE [Concomitant]
     Indication: MYOCLONUS
     Dosage: 75MG DAILY
     Route: 048
     Dates: start: 20080101
  5. CLOZARIL [Suspect]
     Route: 048
     Dates: start: 20100618, end: 19000101

REACTIONS (2)
  - NASOPHARYNGITIS [None]
  - NEUTROPENIA [None]
